FAERS Safety Report 8908611 (Version 1)
Quarter: 2012Q4

REPORT INFORMATION
  Report Type: 
  Country: US (occurrence: US)
  Receive Date: 20121114
  Receipt Date: 20121114
  Transmission Date: 20130627
  Serious: Yes (Other)
  Sender: FDA-Public Use
  Company Number: US-JNJFOC-20121105428

PATIENT
  Sex: Male

DRUGS (2)
  1. REMICADE [Suspect]
     Indication: COLITIS ULCERATIVE
     Dates: start: 2005
  2. IMURAN [Suspect]
     Indication: COLITIS ULCERATIVE
     Dates: start: 2005

REACTIONS (1)
  - Chronic myeloid leukaemia [Unknown]
